FAERS Safety Report 8556040-4 (Version None)
Quarter: 2012Q3

REPORT INFORMATION
  Report Type: 
  Country: None (occurrence: None)
  Receive Date: 20120719
  Receipt Date: 20120703
  Transmission Date: 20120928
  Serious: Yes (Death)
  Sender: FDA-Public Use
  Company Number: OXYC20120038

PATIENT
  Age: 21 Year
  Sex: Male
  Weight: 57 kg

DRUGS (2)
  1. HYDROMORPHONE (HYDROMORPHONE) (1 MILLIGRAM, INJECTION FOR INFUSION) [Suspect]
     Indication: DEBRIDEMENT
     Dosage: 4 MG, TWO DOSES ONE HOUR APART, INTRAVENOUS; 8 MG, 1 IN 10 MIN, INTRAVENOUS
     Route: 042
  2. OXYCODONE HCL [Suspect]
     Indication: PRODUCT USED FOR UNKNOWN INDICATION
     Dosage: ONE DOSE

REACTIONS (1)
  - ALCOHOL POISONING [None]
